FAERS Safety Report 6804321-4 (Version None)
Quarter: 2010Q2

REPORT INFORMATION
  Report Type: 
  Country: None (occurrence: None)
  Receive Date: 20100628
  Receipt Date: 20070306
  Transmission Date: 20101027
  Serious: No
  Sender: FDA-Public Use
  Company Number: US-PFIZER INC-2007019527

PATIENT
  Sex: Female
  Weight: 86.18 kg

DRUGS (3)
  1. GENOTROPIN [Suspect]
     Indication: HYPOPITUITARISM
     Dates: start: 20050301
  2. GENOTROPIN [Suspect]
  3. SYNTHROID [Concomitant]

REACTIONS (1)
  - INCORRECT DOSE ADMINISTERED [None]
